FAERS Safety Report 6873353-2 (Version None)
Quarter: 2010Q3

REPORT INFORMATION
  Report Type: 
  Country: None (occurrence: None)
  Receive Date: 20100723
  Receipt Date: 20090105
  Transmission Date: 20110219
  Serious: No
  Sender: FDA-Public Use
  Company Number: US-PFIZER INC-2008155899

PATIENT
  Sex: Female
  Weight: 55.338 kg

DRUGS (2)
  1. CHANTIX [Suspect]
     Dosage: 0.5/1 MG
     Route: 048
     Dates: start: 20081203
  2. ALL OTHER THERAPEUTIC PRODUCTS [Concomitant]
     Indication: CARDIAC DISORDER
     Dosage: UNK

REACTIONS (4)
  - COUGH [None]
  - MALAISE [None]
  - PYREXIA [None]
  - TOBACCO USER [None]
